FAERS Safety Report 7535125 (Version 6)
Quarter: 2014Q2

REPORT INFORMATION
  Report Type: Spontaneous
  Country: US (occurrence: US)
  Receive Date: 20100810
  Receipt Date: 20140429
  Transmission Date: 20141212
  Serious: Yes (Hospitalization)
  Sender: FDA-Public Use
  Company Number: US-BAYER-201029952NA

PATIENT
  Age: 35 Year
  Sex: Female
  Weight: 83.9 kg

DRUGS (12)
  1. YAZ [Suspect]
     Indication: MENSTRUAL CYCLE MANAGEMENT
     Dosage: UNK UNK, UNK
     Route: 048
     Dates: start: 20090517, end: 20090727
  2. FLUOXETINE [Concomitant]
     Dosage: UNK
     Dates: start: 2006
  3. METFORMIN [Concomitant]
     Dosage: UNK
     Dates: start: 2007
  4. PROZAC [Concomitant]
  5. OXYCONTIN [Concomitant]
  6. OXYCODONE [Concomitant]
  7. HERBAL PREPARATION [Concomitant]
  8. MOTRIN [Concomitant]
  9. VITAMIN C [Concomitant]
  10. CARISOPRODOL [Concomitant]
     Dosage: UNK
     Dates: start: 20090727
  11. AMOXICILLIN [Concomitant]
     Dosage: 875 MG, 20 DISPENSED
  12. DILAUDID [Concomitant]
     Indication: PAIN
     Dosage: UNK UNK, PRN

REACTIONS (9)
  - Deep vein thrombosis [Recovered/Resolved]
  - Pulmonary embolism [None]
  - Peripheral swelling [Recovered/Resolved]
  - Pain in extremity [Recovered/Resolved]
  - Dyspnoea [None]
  - Mental disorder [None]
  - Pelvic venous thrombosis [None]
  - Peripheral artery thrombosis [None]
  - Stress [None]
